FAERS Safety Report 7701892-0 (Version None)
Quarter: 2011Q3

REPORT INFORMATION
  Report Type: 
  Country: None (occurrence: None)
  Receive Date: 20110822
  Receipt Date: 20110805
  Transmission Date: 20111222
  Serious: Yes (Hospitalization)
  Sender: FDA-Public Use
  Company Number: PHHY2011BR71859

PATIENT
  Sex: Male
  Weight: 72 kg

DRUGS (4)
  1. VENALOT (TROXERUTIN/COUMARIN) [Concomitant]
     Dosage: 1 DF/DAY
     Route: 048
  2. ATENOLOL [Concomitant]
     Dosage: 1 DF, (IN THE MORNING)
     Route: 048
  3. BUFFERIN [Suspect]
  4. OLCADIL [Suspect]

REACTIONS (2)
  - CEREBROVASCULAR ACCIDENT [None]
  - MONOPLEGIA [None]
